FAERS Safety Report 7318858-5 (Version None)
Quarter: 2011Q1

REPORT INFORMATION
  Report Type: 
  Country: None (occurrence: None)
  Receive Date: 20110228
  Receipt Date: 20110216
  Transmission Date: 20110831
  Serious: No
  Sender: FDA-Public Use
  Company Number: A0890905A

PATIENT
  Age: 73 Year
  Sex: Female
  Weight: 60.5 kg

DRUGS (5)
  1. IMITREX [Suspect]
     Indication: MIGRAINE
     Dosage: 6MG AS REQUIRED
     Route: 058
     Dates: start: 19930101
  2. ELMIRON [Concomitant]
  3. PROMETRIUM [Concomitant]
  4. HYDROCODONE BITARTRATE [Concomitant]
  5. CLIMARA [Concomitant]

REACTIONS (3)
  - HEADACHE [None]
  - DRUG INEFFECTIVE [None]
  - PRODUCT QUALITY ISSUE [None]
